FAERS Safety Report 4847124-2 (Version None)
Quarter: 2005Q4

REPORT INFORMATION
  Report Type: 
  Country: None (occurrence: None)
  Receive Date: 20051205
  Receipt Date: 20051205
  Transmission Date: 20060501
  Serious: Yes (Other)
  Sender: FDA-Public Use
  Company Number: None

PATIENT
  Age: 38 Year
  Sex: Female

DRUGS (2)
  1. OXYCONTIN [Suspect]
     Indication: INTERVERTEBRAL DISC DISPLACEMENT
     Dosage: ONE Q AM ONE Q PM (?) Q HS
     Dates: start: 20030205
  2. OXYCONTIN [Suspect]
     Indication: POST LAMINECTOMY SYNDROME
     Dosage: ONE Q AM ONE Q PM (?) Q HS
     Dates: start: 20030205

REACTIONS (1)
  - DRUG EFFECT DECREASED [None]
